FAERS Safety Report 6474717-1 (Version None)
Quarter: 2009Q4

REPORT INFORMATION
  Report Type: 
  Country: None (occurrence: None)
  Receive Date: 20091204
  Receipt Date: 20091202
  Transmission Date: 20100525
  Serious: Yes (Life-Threatening)
  Sender: FDA-Public Use
  Company Number: B0541381B

PATIENT
  Sex: Female
  Weight: 55 kg

DRUGS (3)
  1. LAPATINIB [Suspect]
     Indication: BREAST CANCER
     Dosage: 1250MG PER DAY
     Route: 048
     Dates: start: 20080204, end: 20080608
  2. MYOCET [Suspect]
     Indication: BREAST CANCER
     Dosage: 95.4MG EVERY 3 WEEKS
     Route: 042
     Dates: start: 20080204, end: 20080519
  3. PACLITAXEL [Suspect]
     Indication: BREAST CANCER
     Dosage: 278.2MG EVERY 3 WEEKS
     Route: 042
     Dates: start: 20080204, end: 20080519

REACTIONS (1)
  - NEUTROPENIA [None]
